FAERS Safety Report 6405144-0 (Version None)
Quarter: 2009Q4

REPORT INFORMATION
  Report Type: 
  Country: None (occurrence: None)
  Receive Date: 20091016
  Receipt Date: 20091016
  Transmission Date: 20100525
  Serious: Yes (Life-Threatening, Other)
  Sender: FDA-Public Use
  Company Number: None

PATIENT
  Sex: Female
  Weight: 115.6672 kg

DRUGS (1)
  1. TYLENOL SINUS CONGESTION + PAIN [Suspect]
     Indication: NASOPHARYNGITIS
     Dosage: 2 CAPLETS 3X BY MOUTH
     Dates: start: 20090919

REACTIONS (7)
  - ANXIETY [None]
  - CONVERSION DISORDER [None]
  - CRYING [None]
  - DEPRESSION [None]
  - MOOD ALTERED [None]
  - PANIC ATTACK [None]
  - SUICIDAL IDEATION [None]
